FAERS Safety Report 8419977-2 (Version None)
Quarter: 2012Q2

REPORT INFORMATION
  Report Type: 
  Country: None (occurrence: None)
  Receive Date: 20120607
  Receipt Date: 20120601
  Transmission Date: 20120825
  Serious: Yes (Hospitalization)
  Sender: FDA-Public Use
  Company Number: CA-ROCHE-1074782

PATIENT
  Sex: Male

DRUGS (6)
  1. HYDROCHLORIC ACID [Concomitant]
  2. NORVASC [Concomitant]
  3. VEMURAFENIB [Suspect]
     Indication: METASTATIC MALIGNANT MELANOMA
     Route: 048
     Dates: start: 20120501
  4. PANTOPRAZOLE [Concomitant]
  5. PRAVASTATIN [Concomitant]
  6. FRAGMIN [Concomitant]
     Dates: start: 20120513

REACTIONS (2)
  - DEHYDRATION [None]
  - PULMONARY EMBOLISM [None]
